FAERS Safety Report 13459412 (Version 1)
Quarter: 2017Q2

REPORT INFORMATION
  Report Type: Spontaneous
  Country: JP (occurrence: JP)
  Receive Date: 20170419
  Receipt Date: 20170419
  Transmission Date: 20170830
  Serious: Yes (Death)
  Sender: FDA-Public Use
  Company Number: JP-BAYER-2017-070139

PATIENT
  Age: 74 Year
  Sex: Male

DRUGS (1)
  1. XOFIGO [Suspect]
     Active Substance: RADIUM RA-223 DICHLORIDE
     Indication: PROSTATE CANCER
     Dosage: 55KBQ/KG
     Route: 042
     Dates: start: 20161115, end: 20170404

REACTIONS (1)
  - Prostate cancer [Fatal]

NARRATIVE: CASE EVENT DATE: 20170410
